FAERS Safety Report 7052364-0 (Version None)
Quarter: 2010Q4

REPORT INFORMATION
  Report Type: 
  Country: None (occurrence: None)
  Receive Date: 20101019
  Receipt Date: 20101006
  Transmission Date: 20110411
  Serious: Yes (Other)
  Sender: FDA-Public Use
  Company Number: GB-WATSON-2010-13621

PATIENT
  Age: 43 Year
  Sex: Male
  Weight: 55 kg

DRUGS (5)
  1. TOPIRAMATE [Suspect]
     Indication: MIGRAINE
     Dosage: 100 MG, UNKNOWN
     Route: 048
     Dates: start: 20100724, end: 20100914
  2. AMITRIPTYLINE HCL [Concomitant]
     Indication: DEPRESSION
     Dosage: 100 MG, DAILY
     Route: 048
     Dates: start: 20070101
  3. ACETAMINOPHEN AND CODEINE PHOSPHATE [Concomitant]
     Indication: HEADACHE
     Dosage: UNK
     Route: 048
     Dates: start: 20070101
  4. NEURONTIN [Concomitant]
     Indication: MIGRAINE
     Dosage: 600 MG, BID
     Route: 048
     Dates: start: 20100101
  5. ZOLMITRIPTAN [Concomitant]
     Indication: MIGRAINE
     Dosage: 2 1/2 MG, PRN
     Route: 048
     Dates: start: 20070101

REACTIONS (2)
  - NEUTROPENIA [None]
  - RASH [None]
